FAERS Safety Report 5493404-X (Version None)
Quarter: 2007Q4

REPORT INFORMATION
  Report Type: 
  Country: None (occurrence: None)
  Receive Date: 20071023
  Receipt Date: 20071010
  Transmission Date: 20080405
  Serious: Yes (Other)
  Sender: FDA-Public Use
  Company Number: GB-ELI_LILLY_AND_COMPANY-GB200710002813

PATIENT
  Age: 15 Year
  Sex: Male
  Weight: 65.6 kg

DRUGS (3)
  1. STRATTERA [Suspect]
     Dosage: 60 MG, UNKNOWN
     Route: 048
     Dates: end: 20070801
  2. STRATTERA [Suspect]
     Dosage: 40 MG, UNKNOWN
     Route: 065
     Dates: end: 20070801
  3. SERTRALINE [Concomitant]
     Dosage: 25 MG, UNKNOWN
     Route: 048

REACTIONS (3)
  - ARRHYTHMIA [None]
  - TACHYCARDIA [None]
  - TREMOR [None]
